FAERS Safety Report 9705845 (Version 2)
Quarter: 2013Q4

REPORT INFORMATION
  Report Type: Spontaneous
  Country: US (occurrence: US)
  Receive Date: 20131122
  Receipt Date: 20131122
  Transmission Date: 20140711
  Serious: No
  Sender: FDA-Public Use
  Company Number: US-GILEAD-2008-0018009

PATIENT
  Age: 85 Year
  Sex: Female
  Weight: 72.57 kg

DRUGS (12)
  1. LETAIRIS [Suspect]
     Indication: PULMONARY ARTERIAL HYPERTENSION
     Route: 048
     Dates: start: 20080826, end: 20081119
  2. LETAIRIS [Suspect]
     Route: 048
     Dates: start: 20080814, end: 20080825
  3. LETAIRIS [Suspect]
     Route: 048
     Dates: start: 20080713, end: 20080813
  4. REVATIO [Concomitant]
     Route: 048
  5. TOPROL XL [Concomitant]
     Route: 048
  6. PLENDIL [Concomitant]
     Route: 048
  7. FUROSEMIDE [Concomitant]
     Route: 048
  8. ATACAND HCT [Concomitant]
     Route: 048
  9. ULTRAM [Concomitant]
     Route: 048
  10. MOBIC [Concomitant]
     Route: 048
  11. PREDNISONE [Concomitant]
     Route: 048
  12. SYMBICORT [Concomitant]

REACTIONS (4)
  - Rhinorrhoea [Unknown]
  - Hot flush [Unknown]
  - Local swelling [Unknown]
  - Flushing [Unknown]
